FAERS Safety Report 6706026-7 (Version None)
Quarter: 2010Q2

REPORT INFORMATION
  Report Type: 
  Country: None (occurrence: None)
  Receive Date: 20100423
  Receipt Date: 20100308
  Transmission Date: 20101027
  Serious: No
  Sender: FDA-Public Use
  Company Number: ALL1-2010-00194

PATIENT
  Age: 14 Year
  Sex: Male
  Weight: 54.4 kg

DRUGS (4)
  1. VYVANSE [Suspect]
     Indication: ATTENTION DEFICIT/HYPERACTIVITY DISORDER
     Dosage: 30 MG, 1X/DAY:QD, ORAL
     Route: 048
     Dates: start: 20080101, end: 20091101
  2. PRED FORTE [Concomitant]
  3. DESMOPRESSIN ACETATE [Concomitant]
  4. TIMOLOL MALEATE [Concomitant]

REACTIONS (3)
  - CONDITION AGGRAVATED [None]
  - INTRAOCULAR PRESSURE INCREASED [None]
  - OFF LABEL USE [None]
